FAERS Safety Report 5303657-6 (Version None)
Quarter: 2007Q2

REPORT INFORMATION
  Report Type: 
  Country: None (occurrence: None)
  Receive Date: 20070420
  Receipt Date: 20070409
  Transmission Date: 20071010
  Serious: Yes (Other)
  Sender: FDA-Public Use
  Company Number: US-PFIZER INC-2007017418

PATIENT
  Sex: Male

DRUGS (2)
  1. GENOTROPIN [Suspect]
  2. GENOTROPIN [Suspect]

REACTIONS (4)
  - MEDICATION ERROR [None]
  - MOOD SWINGS [None]
  - SUICIDAL IDEATION [None]
  - WEIGHT DECREASED [None]
